FAERS Safety Report 23403279 (Version 1)
Quarter: 2024Q1

REPORT INFORMATION
  Report Type: Spontaneous
  Country: FR (occurrence: FR)
  Receive Date: 20240116
  Receipt Date: 20240116
  Transmission Date: 20240409
  Serious: Yes (Other)
  Sender: FDA-Public Use
  Company Number: FR-ALKEM LABORATORIES LIMITED-FR-ALKEM-2023-04697

PATIENT

DRUGS (4)
  1. CAPECITABINE [Suspect]
     Active Substance: CAPECITABINE
     Indication: Metastasis
     Dosage: UNK
     Route: 065
  2. CAPECITABINE [Suspect]
     Active Substance: CAPECITABINE
     Indication: Breast cancer
  3. CYCLOPHOSPHAMIDE [Suspect]
     Active Substance: CYCLOPHOSPHAMIDE
     Indication: Metastasis
     Dosage: UNK
     Route: 065
  4. CYCLOPHOSPHAMIDE [Suspect]
     Active Substance: CYCLOPHOSPHAMIDE
     Indication: Breast cancer

REACTIONS (2)
  - Neurotoxicity [Unknown]
  - Leukoencephalopathy [Unknown]
